FAERS Safety Report 7622809-3 (Version None)
Quarter: 2011Q3

REPORT INFORMATION
  Report Type: 
  Country: None (occurrence: None)
  Receive Date: 20110720
  Receipt Date: 20110620
  Transmission Date: 20111222
  Serious: No
  Sender: FDA-Public Use
  Company Number: US-MYLANLABS-2011S1009976

PATIENT
  Age: 71 Year
  Sex: Male

DRUGS (22)
  1. TRIAMTERENE AND HYDROCHLOROTHIAZIDE [Suspect]
     Indication: DIZZINESS
     Route: 048
     Dates: start: 20110424, end: 20110504
  2. TRIAMTERENE AND HYDROCHLOROTHIAZIDE [Suspect]
     Route: 048
     Dates: start: 20110424, end: 20110504
  3. NITROGLYCERIN [Concomitant]
  4. TRIAMTERENE AND HYDROCHLOROTHIAZIDE [Suspect]
     Indication: OEDEMA
     Route: 048
     Dates: start: 20110424, end: 20110504
  5. TRIAMTERENE AND HYDROCHLOROTHIAZIDE [Suspect]
     Route: 048
     Dates: start: 20110424, end: 20110504
  6. PLAVIX [Concomitant]
  7. ANTIOXIDANT /02147801/ [Concomitant]
  8. TRIAMTERENE AND HYDROCHLOROTHIAZIDE [Suspect]
     Route: 048
     Dates: start: 20110424, end: 20110504
  9. ASPIRIN [Concomitant]
  10. CENTRUM SILVER [Concomitant]
  11. PROCOSA II [Concomitant]
  12. MINERAL [Concomitant]
  13. TRIAMTERENE AND HYDROCHLOROTHIAZIDE [Suspect]
     Route: 048
     Dates: start: 20110424, end: 20110504
  14. TRIAMTERENE AND HYDROCHLOROTHIAZIDE [Suspect]
     Route: 048
     Dates: start: 20110424, end: 20110504
  15. PEPCID [Concomitant]
  16. GREEN /03104501/ [Concomitant]
  17. TRIAMTERENE AND HYDROCHLOROTHIAZIDE [Suspect]
     Route: 048
     Dates: start: 20110424, end: 20110504
  18. TOPROL-XL [Concomitant]
  19. LIPITOR [Concomitant]
  20. BUSPIRONE [Concomitant]
  21. ASCORBIC ACID [Concomitant]
  22. BIOMEGA [Concomitant]

REACTIONS (3)
  - DRUG INEFFECTIVE [None]
  - OEDEMA [None]
  - FLUID RETENTION [None]
